FAERS Safety Report 26012061 (Version 1)
Quarter: 2025Q4

REPORT INFORMATION
  Report Type: Spontaneous
  Country: US (occurrence: US)
  Receive Date: 20251107
  Receipt Date: 20251107
  Transmission Date: 20260117
  Serious: Yes (Hospitalization, Other)
  Sender: PURDUE
  Company Number: US-PURDUE PHARMA-USA-2025-0321895

PATIENT
  Age: 63 Year
  Sex: Male
  Weight: 62 kg

DRUGS (3)
  1. OXYCODONE HYDROCHLORIDE [Suspect]
     Active Substance: OXYCODONE HYDROCHLORIDE
     Indication: Analgesic therapy
     Dosage: 80 MILLIGRAM
     Route: 048
  2. MORPHINE [Suspect]
     Active Substance: MORPHINE
     Indication: Analgesic therapy
     Dosage: 6 MILLIGRAM
     Route: 042
  3. LIDOCAINE [Suspect]
     Active Substance: LIDOCAINE
     Indication: Analgesic therapy
     Dosage: 3 MILLILITRE PER KILOGRAM
     Route: 065

REACTIONS (2)
  - Local anaesthetic systemic toxicity [Unknown]
  - Toxicity to various agents [Unknown]
